FAERS Safety Report 11021179 (Version 1)
Quarter: 2015Q2

REPORT INFORMATION
  Report Type: Spontaneous
  Country: US (occurrence: US)
  Receive Date: 20150413
  Receipt Date: 20150413
  Transmission Date: 20150821
  Serious: Yes (Death, Other)
  Sender: FDA-Public Use
  Company Number: US-ROCHE-1561696

PATIENT
  Age: 80 Year
  Sex: Female

DRUGS (1)
  1. ZELBORAF [Suspect]
     Active Substance: VEMURAFENIB
     Indication: METASTATIC MALIGNANT MELANOMA
     Route: 065
     Dates: start: 201203, end: 2012

REACTIONS (6)
  - Dermatitis [Recovering/Resolving]
  - Decubitus ulcer [Recovering/Resolving]
  - Rash [Recovering/Resolving]
  - Dysphagia [Recovering/Resolving]
  - Sepsis [Fatal]
  - Skin exfoliation [Recovering/Resolving]
